FAERS Safety Report 21251250 (Version 1)
Quarter: 2022Q3

REPORT INFORMATION
  Report Type: Spontaneous
  Country: FR (occurrence: FR)
  Receive Date: 20220825
  Receipt Date: 20220825
  Transmission Date: 20221027
  Serious: Yes (Hospitalization)
  Sender: FDA-Public Use
  Company Number: FR-AFSSAPS-ST20221916

PATIENT
  Age: 54 Year
  Sex: Female
  Weight: 66 kg

DRUGS (4)
  1. LEVOFLOXACIN SODIUM [Suspect]
     Active Substance: LEVOFLOXACIN SODIUM
     Indication: Pleurisy
     Dosage: 1 DOSAGE FORM
     Route: 048
     Dates: start: 20201123, end: 20201212
  2. AUGMENTIN [Suspect]
     Active Substance: AMOXICILLIN\CLAVULANATE POTASSIUM
     Indication: Pleurisy
     Dosage: 1 DOSAGE FORM
     Route: 048
     Dates: start: 20201117, end: 20201123
  3. CEFOTAXIME [Suspect]
     Active Substance: CEFOTAXIME SODIUM
     Indication: Pleurisy
     Dosage: 1 DOSAGE FORM
     Route: 042
     Dates: start: 20201123, end: 20201130
  4. LOVENOX [Suspect]
     Active Substance: ENOXAPARIN SODIUM
     Indication: Pleurisy
     Dosage: 1 DOSAGE FORM
     Route: 042
     Dates: start: 20201117, end: 20201202

REACTIONS (2)
  - Rash papular [Recovered/Resolved]
  - Eosinophilia [Recovered/Resolved]

NARRATIVE: CASE EVENT DATE: 20201125
